FAERS Safety Report 8815866 (Version 1)
Quarter: 2012Q4

REPORT INFORMATION
  Report Type: 
  Country: CH (occurrence: CH)
  Receive Date: 20120928
  Receipt Date: 20120928
  Transmission Date: 20130627
  Serious: Yes (Other)
  Sender: FDA-Public Use
  Company Number: CH-ROCHE-1136932

PATIENT
  Sex: Male

DRUGS (10)
  1. LUCENTIS [Suspect]
     Indication: AGE-RELATED MACULAR DEGENERATION
     Route: 050
     Dates: start: 20120327
  2. LUCENTIS [Suspect]
     Route: 050
     Dates: start: 20120522
  3. LUCENTIS [Suspect]
     Route: 050
     Dates: start: 20120806
  4. TETRACAINE 1% [Suspect]
     Indication: PRODUCT USED FOR UNKNOWN INDICATION
     Route: 065
  5. DEPAKINE CHRONO [Concomitant]
     Route: 065
  6. DEPAKINE CHRONO [Concomitant]
     Route: 065
  7. DEPAKINE CHRONO [Concomitant]
     Route: 065
  8. FLOXAL [Concomitant]
     Route: 065
  9. VISCOTEARS [Concomitant]
     Route: 065
  10. OCTENISEPT [Concomitant]
     Route: 065

REACTIONS (1)
  - Grand mal convulsion [Recovered/Resolved]
